FAERS Safety Report 7874501 (Version 4)
Quarter: 2013Q3

REPORT INFORMATION
  Report Type: Report from Study
  Country: DE (occurrence: DE)
  Receive Date: 20110328
  Receipt Date: 20130830
  Transmission Date: 20140515
  Serious: Yes (Hospitalization)
  Sender: FDA-Public Use
  Company Number: PHHO2011DE04717

PATIENT
  Age: 36 Year
  Sex: Female
  Weight: 84 kg

DRUGS (13)
  1. FTY 720 [Suspect]
     Indication: MULTIPLE SCLEROSIS
     Dosage: 0.5 MG, QD
     Route: 048
     Dates: start: 20101124
  2. QUILONIUM [Suspect]
     Indication: BIPOLAR DISORDER
  3. CIPRAMIL [Concomitant]
  4. THYROXIN [Concomitant]
  5. MOVICOL [Concomitant]
     Indication: CONSTIPATION
  6. ZOPICLONE [Concomitant]
     Indication: SLEEP DISORDER
  7. METOCLOPRAMID [Concomitant]
  8. IBUPROFEN [Concomitant]
     Indication: PAIN
  9. LORAZEPAM [Concomitant]
     Indication: SLEEP DISORDER
  10. BETAHISTINE [Concomitant]
     Indication: VERTIGO
  11. ACC [Concomitant]
     Indication: NASOPHARYNGITIS
  12. LITHIUM [Concomitant]
  13. ANTIDEPRESSANTS [Concomitant]

REACTIONS (3)
  - Epilepsy [Recovered/Resolved]
  - Disorientation [Recovered/Resolved]
  - Loss of consciousness [Recovered/Resolved]
